FAERS Safety Report 7279650-3 (Version None)
Quarter: 2011Q1

REPORT INFORMATION
  Report Type: 
  Country: None (occurrence: None)
  Receive Date: 20110203
  Receipt Date: 20110203
  Transmission Date: 20110831
  Serious: Yes (Hospitalization)
  Sender: FDA-Public Use
  Company Number: None

PATIENT
  Sex: Female
  Weight: 43.64 kg

DRUGS (1)
  1. CISPLATIN [Suspect]
     Dosage: 69 MG

REACTIONS (14)
  - DYSPNOEA [None]
  - HAEMATOCRIT DECREASED [None]
  - PCO2 DECREASED [None]
  - ELECTROCARDIOGRAM ABNORMAL [None]
  - NAUSEA [None]
  - VOMITING [None]
  - WHITE BLOOD CELL COUNT DECREASED [None]
  - BLOOD POTASSIUM DECREASED [None]
  - FATIGUE [None]
  - MYOCARDIAL INFARCTION [None]
  - HAEMOGLOBIN DECREASED [None]
  - HYPOPHAGIA [None]
  - DIARRHOEA [None]
  - LUNG NEOPLASM [None]
